FAERS Safety Report 16263406 (Version 1)
Quarter: 2019Q2

REPORT INFORMATION
  Report Type: Spontaneous
  Country: SE (occurrence: SE)
  Receive Date: 20190502
  Receipt Date: 20190502
  Transmission Date: 20190711
  Serious: Yes (Death)
  Sender: FDA-Public Use
  Company Number: SE-TEVA-2019-SE-1045375

PATIENT
  Age: 33 Year
  Sex: Female

DRUGS (20)
  1. KETIPINOR [Concomitant]
     Active Substance: QUETIAPINE FUMARATE
     Dosage: 100 MILLIGRAM DAILY; OVERNIGHT
  2. LERGIGAN [PROMETHAZINE HYDROCHLORIDE] [Concomitant]
     Active Substance: PROMETHAZINE HYDROCHLORIDE
     Dosage: 50 MG
  3. NOZINAN [Concomitant]
     Active Substance: LEVOMEPROMAZINE
     Dosage: 5 MG
  4. LYRICA [Suspect]
     Active Substance: PREGABALIN
     Indication: ANXIETY
     Dosage: 300 MILLIGRAM DAILY;
     Route: 048
  5. MIRTAZAPINE. [Concomitant]
     Active Substance: MIRTAZAPINE
     Dosage: 30 MILLIGRAM DAILY; 30 MG OVERNIGHT
  6. PARAFLEX [Concomitant]
     Active Substance: CHLORZOXAZONE
     Dosage: ^250MG 1-2 VB^
  7. PRIMPERAN [Concomitant]
     Active Substance: METOCLOPRAMIDE HYDROCHLORIDE
  8. DIMOR [Concomitant]
     Active Substance: LOPERAMIDE
     Dosage: 2 MG
  9. OXASCAND [Concomitant]
     Active Substance: OXAZEPAM
     Dosage: 5 MG
  10. OXYCODONE [Suspect]
     Active Substance: OXYCODONE
     Indication: FIBROMYALGIA
     Route: 048
  11. DEPO-PROVERA [Concomitant]
     Active Substance: MEDROXYPROGESTERONE ACETATE
  12. MICROLAX [Concomitant]
  13. STILNOCT [Concomitant]
     Active Substance: ZOLPIDEM TARTRATE
     Dosage: 5 MG
  14. THERALEN [Concomitant]
     Active Substance: TRIMEPRAZINE
     Dosage: ^0.5-2ML VB^
  15. ATTENTIN (DEXAMFETAMINE SULFATE) [Suspect]
     Active Substance: DEXTROAMPHETAMINE SULFATE
     Indication: AFFECT LABILITY
     Dosage: 30 MILLIGRAM DAILY;
     Route: 048
     Dates: start: 20160620, end: 20180110
  16. ALVEDON FORTE [Concomitant]
     Dosage: 4 GRAM DAILY;
  17. CALCICHEW-D3 [Concomitant]
     Active Substance: CALCIUM\CHOLECALCIFEROL
     Dosage: 1X2
  18. BEHEPAN [Concomitant]
     Active Substance: HYDROXOCOBALAMIN
     Dosage: 1 MILLIGRAM DAILY;
  19. BUPREFARM 5 MIKROGRAM/TIMME DEPOTPLASTERBUPRENORPHINE [Suspect]
     Active Substance: BUPRENORPHINE
     Indication: FIBROMYALGIA
     Dosage: ACCORDING TO SPECIAL PRESCRIPTION
     Route: 062
  20. VENLAFAXINE [Concomitant]
     Active Substance: VENLAFAXINE HYDROCHLORIDE
     Dosage: 150 MILLIGRAM DAILY;

REACTIONS (2)
  - Overdose [Fatal]
  - Sudden death [Fatal]

NARRATIVE: CASE EVENT DATE: 201812
